FAERS Safety Report 8326256-0 (Version None)
Quarter: 2012Q2

REPORT INFORMATION
  Report Type: 
  Country: None (occurrence: None)
  Receive Date: 20120501
  Receipt Date: 20081114
  Transmission Date: 20120825
  Serious: No
  Sender: FDA-Public Use
  Company Number: 2008BI030865

PATIENT
  Age: 38 Year
  Sex: Male

DRUGS (1)
  1. TYSABRI [Suspect]
     Indication: MULTIPLE SCLEROSIS
     Route: 042
     Dates: start: 20080530

REACTIONS (7)
  - SUNBURN [None]
  - PRURITUS [None]
  - MULTIPLE SCLEROSIS RELAPSE [None]
  - PRURITUS GENERALISED [None]
  - MIGRAINE [None]
  - HYPOAESTHESIA [None]
  - LOWER EXTREMITY MASS [None]
